FAERS Safety Report 8282333-4 (Version None)
Quarter: 2012Q2

REPORT INFORMATION
  Report Type: 
  Country: None (occurrence: None)
  Receive Date: 20120413
  Receipt Date: 20120410
  Transmission Date: 20120825
  Serious: Yes (Other)
  Sender: FDA-Public Use
  Company Number: BE-JNJFOC-20120312951

PATIENT
  Sex: Male

DRUGS (1)
  1. LISTERINE [Suspect]
     Indication: GINGIVITIS
     Dosage: MORE THAN 10 TIMES A DAY
     Route: 048

REACTIONS (2)
  - THERAPY REGIMEN CHANGED [None]
  - GINGIVAL EROSION [None]
